FAERS Safety Report 10056277 (Version 1)
Quarter: 2014Q2

REPORT INFORMATION
  Report Type: Spontaneous
  Country: US (occurrence: US)
  Receive Date: 20140403
  Receipt Date: 20140403
  Transmission Date: 20141212
  Serious: No
  Sender: FDA-Public Use
  Company Number: US-BAYER-2014-050462

PATIENT
  Age: 61 Year
  Sex: Female
  Weight: 56.69 kg

DRUGS (1)
  1. ALEVE TABLET [Suspect]
     Indication: PAIN
     Dosage: 1 DF, QOD
     Route: 048
     Dates: start: 2013

REACTIONS (1)
  - Headache [Recovered/Resolved]
